FAERS Safety Report 14395369 (Version 1)
Quarter: 2018Q1

REPORT INFORMATION
  Report Type: Spontaneous
  Country: US (occurrence: US)
  Receive Date: 20180116
  Receipt Date: 20180116
  Transmission Date: 20180509
  Serious: No
  Sender: FDA-Public Use
  Company Number: US-ALLERGAN-1707473US

PATIENT
  Age: 35 Year
  Sex: Female
  Weight: 55.33 kg

DRUGS (1)
  1. BOTOX COSMETIC [Suspect]
     Active Substance: ONABOTULINUMTOXINA
     Indication: SKIN WRINKLING
     Dosage: 20 UNITS, SINGLE
     Route: 030
     Dates: start: 20170216, end: 20170216

REACTIONS (5)
  - Paranasal sinus discomfort [Unknown]
  - Musculoskeletal stiffness [Unknown]
  - Headache [Unknown]
  - Anxiety [Unknown]
  - Tinnitus [Unknown]

NARRATIVE: CASE EVENT DATE: 20170218
